FAERS Safety Report 6906626-5 (Version None)
Quarter: 2010Q3

REPORT INFORMATION
  Report Type: 
  Country: None (occurrence: None)
  Receive Date: 20100804
  Receipt Date: 20100728
  Transmission Date: 20110219
  Serious: Yes (Hospitalization)
  Sender: FDA-Public Use
  Company Number: US-JNJFOC-20100709162

PATIENT
  Age: 6 Decade
  Sex: Female

DRUGS (1)
  1. DURAGESIC-100 [Suspect]
     Indication: PAIN
     Route: 062

REACTIONS (2)
  - TACHYCARDIA [None]
  - WRONG TECHNIQUE IN DRUG USAGE PROCESS [None]
